FAERS Safety Report 5570320-6 (Version None)
Quarter: 2007Q4

REPORT INFORMATION
  Report Type: 
  Country: None (occurrence: None)
  Receive Date: 20071219
  Receipt Date: 20071219
  Transmission Date: 20080405
  Serious: Yes (Other)
  Sender: FDA-Public Use
  Company Number: None

PATIENT
  Age: 30 Year
  Sex: Female
  Weight: 65.7716 kg

DRUGS (2)
  1. FLAGYL [Suspect]
     Indication: GASTRIC INFECTION
     Dosage: 3 TIMES A DAY FOR 7 DAYS PO
     Route: 048
     Dates: start: 20071106, end: 20071112
  2. FLAGYL [Suspect]
     Indication: GASTROINTESTINAL INFECTION
     Dosage: 3 TIMES A DAY FOR 7 DAYS PO
     Route: 048
     Dates: start: 20071106, end: 20071112

REACTIONS (22)
  - ANOREXIA [None]
  - ASTHENIA [None]
  - ATAXIA [None]
  - BALANCE DISORDER [None]
  - CONFUSIONAL STATE [None]
  - DEPRESSION [None]
  - DISORIENTATION [None]
  - DIZZINESS [None]
  - DRUG HYPERSENSITIVITY [None]
  - ERYTHEMA [None]
  - FATIGUE [None]
  - HEADACHE [None]
  - HYPOAESTHESIA [None]
  - IMPAIRED DRIVING ABILITY [None]
  - IMPAIRED WORK ABILITY [None]
  - NEUROPATHY [None]
  - PARAESTHESIA [None]
  - POLYURIA [None]
  - STOMATITIS [None]
  - TONGUE DISCOLOURATION [None]
  - TONGUE DISORDER [None]
  - VERTIGO [None]
